FAERS Safety Report 6813383-X (Version None)
Quarter: 2010Q3

REPORT INFORMATION
  Report Type: 
  Country: None (occurrence: None)
  Receive Date: 20100701
  Receipt Date: 20100621
  Transmission Date: 20110219
  Serious: Yes (Other)
  Sender: FDA-Public Use
  Company Number: PHHY2010US25492

PATIENT
  Sex: Female

DRUGS (11)
  1. EXTAVIA [Suspect]
     Indication: MULTIPLE SCLEROSIS
     Dosage: 0.25 MG, QOD
     Route: 058
     Dates: start: 20100311, end: 20100518
  2. CLONAZEPAM [Concomitant]
     Indication: MUSCLE SPASMS
     Dosage: 1 MG, QHS
  3. TOPAMAX [Concomitant]
     Indication: MIGRAINE
  4. DITROPAN [Concomitant]
     Indication: URINARY TRACT DISORDER
  5. ZOLOFT [Concomitant]
     Indication: DEPRESSION
  6. ATENOLOL [Concomitant]
     Indication: HYPERTENSION
  7. VYTORIN [Concomitant]
     Indication: HYPERLIPIDAEMIA
  8. MAXALT [Concomitant]
     Indication: HEADACHE
  9. PREMARIN [Concomitant]
  10. ALEVE (CAPLET) [Concomitant]
  11. LISINOPRIL [Concomitant]
     Indication: HYPERTENSION

REACTIONS (9)
  - ABASIA [None]
  - ASTHENIA [None]
  - ERYTHEMA [None]
  - HEADACHE [None]
  - INJECTION SITE PAIN [None]
  - INJECTION SITE SWELLING [None]
  - MALAISE [None]
  - MOVEMENT DISORDER [None]
  - OEDEMA PERIPHERAL [None]
